FAERS Safety Report 17044595 (Version 1)
Quarter: 2019Q4

REPORT INFORMATION
  Report Type: Spontaneous
  Country: None (occurrence: KZ)
  Receive Date: 20191118
  Receipt Date: 20191118
  Transmission Date: 20200122
  Serious: Yes (Death)
  Sender: FDA-Public Use
  Company Number: KZ-AKRON, INC.-2076961

PATIENT
  Sex: Female

DRUGS (1)
  1. CAPASTAT SULFATE [Suspect]
     Active Substance: CAPREOMYCIN SULFATE

REACTIONS (7)
  - Pyelonephritis chronic [Fatal]
  - Toxic shock syndrome [Fatal]
  - Ulcer [Fatal]
  - Cholecystitis chronic [Fatal]
  - Peritonitis [Fatal]
  - Intestinal obstruction [Fatal]
  - Duodenal perforation [Fatal]
